FAERS Safety Report 12688961 (Version 1)
Quarter: 2016Q3

REPORT INFORMATION
  Report Type: Spontaneous
  Country: BR (occurrence: BR)
  Receive Date: 20160825
  Receipt Date: 20160825
  Transmission Date: 20161109
  Serious: Yes (Other)
  Sender: FDA-Public Use
  Company Number: BR-009507513-1608BRA011637

PATIENT
  Sex: Female

DRUGS (1)
  1. PRINIVIL [Suspect]
     Active Substance: LISINOPRIL
     Indication: HYPERTENSION
     Dosage: UNK
     Route: 048
     Dates: start: 1990, end: 2010

REACTIONS (6)
  - Diabetic eye disease [Not Recovered/Not Resolved]
  - IIIrd nerve paralysis [Unknown]
  - Intraocular pressure increased [Not Recovered/Not Resolved]
  - Blood glucose increased [Recovered/Resolved]
  - Cataract [Recovered/Resolved]
  - Blood pressure increased [Recovered/Resolved]

NARRATIVE: CASE EVENT DATE: 2009
